FAERS Safety Report 6792941-5 (Version None)
Quarter: 2010Q2

REPORT INFORMATION
  Report Type: 
  Country: None (occurrence: None)
  Receive Date: 20100624
  Receipt Date: 20081201
  Transmission Date: 20101027
  Serious: No
  Sender: FDA-Public Use
  Company Number: US-PFIZER INC-2008085765

PATIENT
  Sex: Male
  Weight: 20.3 kg

DRUGS (1)
  1. GENOTROPIN [Suspect]
     Indication: SMALL FOR DATES BABY
     Dosage: UNK
     Dates: start: 20080611

REACTIONS (3)
  - HEADACHE [None]
  - MYOPIA [None]
  - OPTIC NERVE CUP/DISC RATIO INCREASED [None]
